FAERS Safety Report 9160288 (Version 2)
Quarter: 2013Q3

REPORT INFORMATION
  Report Type: Report from Study
  Country: GB (occurrence: GB)
  Receive Date: 20130313
  Receipt Date: 20130903
  Transmission Date: 20140515
  Serious: Yes (Death)
  Sender: FDA-Public Use
  Company Number: GB-ROCHE-1201077

PATIENT
  Sex: Male

DRUGS (2)
  1. RITUXIMAB [Suspect]
     Indication: RHEUMATOID ARTHRITIS
     Dosage: DATE OF LAST DOSE PRIOR TO SAE:25/MAR/2008, 1000 MG
     Route: 065
     Dates: start: 20080311
  2. METHOTREXATE [Concomitant]
     Route: 065
     Dates: start: 20060530

REACTIONS (2)
  - Myocardial infarction [Fatal]
  - Cerebrovascular disorder [Fatal]
